FAERS Safety Report 4747055-2 (Version None)
Quarter: 2005Q3

REPORT INFORMATION
  Report Type: 
  Country: None (occurrence: None)
  Receive Date: 20050815
  Receipt Date: 20050802
  Transmission Date: 20060218
  Serious: Yes (Hospitalization, Other)
  Sender: FDA-Public Use
  Company Number: USA0508104430

PATIENT
  Age: 61 Year
  Sex: Male

DRUGS (6)
  1. HUMALOG [Suspect]
     Dosage: 20 U/2 DAY
  2. HUMALOG [Suspect]
  3. TOPROL-XL [Concomitant]
  4. BABY ASPIRIN (ACETYLSALICYIC ACID) [Concomitant]
  5. LIPITOR [Concomitant]
  6. COUMADIN [Concomitant]

REACTIONS (5)
  - BLOOD GLUCOSE INCREASED [None]
  - CARDIAC OPERATION [None]
  - DEVICE MALFUNCTION [None]
  - DIABETES MELLITUS INADEQUATE CONTROL [None]
  - PHARMACEUTICAL PRODUCT COMPLAINT [None]
